FAERS Safety Report 9419096 (Version 1)
Quarter: 2013Q3

REPORT INFORMATION
  Report Type: Spontaneous
  Country: US (occurrence: None)
  Receive Date: 20130722
  Receipt Date: 20130722
  Transmission Date: 20140515
  Serious: No
  Sender: FDA-Public Use
  Company Number: None

PATIENT
  Age: 64 Year
  Sex: Male
  Weight: 118 kg

DRUGS (2)
  1. HURRICAINE [Suspect]
     Dosage: UNSPECIFIED UNSPECIFIED TOPICAL (THROAT)
     Route: 061
     Dates: start: 20130607
  2. LIDOCAINE [Suspect]
     Dosage: UNSPECIFIED ONCE TOPICAL (THROAT)
     Route: 061
     Dates: start: 20130607

REACTIONS (1)
  - Methaemoglobinaemia [None]
